FAERS Safety Report 8369532-8 (Version None)
Quarter: 2012Q2

REPORT INFORMATION
  Report Type: 
  Country: None (occurrence: None)
  Receive Date: 20120517
  Receipt Date: 20120517
  Transmission Date: 20120825
  Serious: No
  Sender: FDA-Public Use
  Company Number: None

PATIENT
  Sex: Female

DRUGS (1)
  1. EXJADE [Suspect]
     Indication: CHELATION THERAPY
     Dosage: 1500 MG QD PO
     Route: 048
     Dates: start: 20111001

REACTIONS (7)
  - JOINT EFFUSION [None]
  - RASH [None]
  - DIARRHOEA [None]
  - JOINT SWELLING [None]
  - VISION BLURRED [None]
  - ABDOMINAL PAIN UPPER [None]
  - BONE PAIN [None]
